FAERS Safety Report 5490034-0 (Version None)
Quarter: 2007Q4

REPORT INFORMATION
  Report Type: 
  Country: None (occurrence: None)
  Receive Date: 20071016
  Receipt Date: 20071002
  Transmission Date: 20080405
  Serious: Yes (Hospitalization)
  Sender: FDA-Public Use
  Company Number: RENA-12259

PATIENT
  Age: 50 Year
  Sex: Female

DRUGS (1)
  1. RENAGEL [Suspect]
     Indication: HYPERPHOSPHATAEMIA
     Dosage: 2.4 G TID PO
     Route: 048
     Dates: start: 20070720, end: 20070807

REACTIONS (6)
  - ABDOMINAL PAIN [None]
  - CONFUSIONAL STATE [None]
  - MUSCULAR WEAKNESS [None]
  - NAUSEA [None]
  - PHARMACEUTICAL PRODUCT COMPLAINT [None]
  - VOMITING [None]
